FAERS Safety Report 25171063 (Version 1)
Quarter: 2025Q2

REPORT INFORMATION
  Report Type: Spontaneous
  Country: ZA (occurrence: ZA)
  Receive Date: 20250408
  Receipt Date: 20250408
  Transmission Date: 20250717
  Serious: Yes (Other)
  Sender: AMGEN
  Company Number: ZA-PFIZER INC-PV202500038606

PATIENT
  Age: 45 Year
  Sex: Female
  Weight: 65 kg

DRUGS (16)
  1. ENBREL [Suspect]
     Active Substance: ETANERCEPT
     Indication: Psoriasis
     Dosage: 50 MG, WEEKLY
     Route: 065
  2. ENBREL [Suspect]
     Active Substance: ETANERCEPT
     Indication: Psoriatic arthropathy
     Route: 065
  3. ENBREL [Suspect]
     Active Substance: ETANERCEPT
     Indication: Enthesopathy
     Route: 065
  4. METHOTREXATE SODIUM [Suspect]
     Active Substance: METHOTREXATE SODIUM
     Indication: Psoriasis
     Dosage: 25 MG, WEEKLY
     Route: 065
  5. METHOTREXATE SODIUM [Suspect]
     Active Substance: METHOTREXATE SODIUM
     Indication: Psoriatic arthropathy
     Route: 065
  6. METHOTREXATE SODIUM [Suspect]
     Active Substance: METHOTREXATE SODIUM
     Indication: Enthesopathy
     Route: 065
  7. CHLOROQUINE [Suspect]
     Active Substance: CHLOROQUINE
     Indication: Psoriasis
     Dosage: 200 MG, DAILY
     Route: 065
     Dates: start: 201401, end: 202106
  8. CHLOROQUINE [Suspect]
     Active Substance: CHLOROQUINE
     Indication: Psoriatic arthropathy
     Route: 065
  9. CHLOROQUINE [Suspect]
     Active Substance: CHLOROQUINE
     Indication: Enthesopathy
     Route: 065
  10. LEFLUNOMIDE [Suspect]
     Active Substance: LEFLUNOMIDE
     Indication: Psoriasis
     Dosage: 20 MG, DAILY
     Route: 065
     Dates: start: 201811
  11. LEFLUNOMIDE [Suspect]
     Active Substance: LEFLUNOMIDE
     Indication: Psoriatic arthropathy
     Route: 065
  12. LEFLUNOMIDE [Suspect]
     Active Substance: LEFLUNOMIDE
     Indication: Enthesopathy
     Route: 065
  13. CELEBREX [Suspect]
     Active Substance: CELECOXIB
     Indication: Analgesic intervention supportive therapy
     Route: 065
     Dates: start: 202307
  14. ARCOXIA [Suspect]
     Active Substance: ETORICOXIB
     Indication: Analgesic intervention supportive therapy
     Route: 065
     Dates: start: 202001, end: 202008
  15. DICLOFENAC SODIUM [Suspect]
     Active Substance: DICLOFENAC SODIUM
     Indication: Analgesic intervention supportive therapy
     Dosage: 100 MG, DAILY
     Route: 065
     Dates: start: 202305, end: 202307
  16. SIMPONI [Suspect]
     Active Substance: GOLIMUMAB
     Indication: Product used for unknown indication
     Dosage: 50 MG, MONTHLY
     Route: 065

REACTIONS (3)
  - Condition aggravated [Unknown]
  - Haemoglobin decreased [Recovering/Resolving]
  - Treatment failure [Unknown]

NARRATIVE: CASE EVENT DATE: 20230714
